FAERS Safety Report 6426961-7 (Version None)
Quarter: 2009Q4

REPORT INFORMATION
  Report Type: 
  Country: None (occurrence: None)
  Receive Date: 20091103
  Receipt Date: 20091103
  Transmission Date: 20100525
  Serious: No
  Sender: FDA-Public Use
  Company Number: None

PATIENT
  Sex: Female

DRUGS (1)
  1. ESTRADIOL AND NORETHINDRONE ACETATE [Suspect]
     Indication: MENOPAUSAL SYMPTOMS
     Dosage: ORALLY DAILY 047
     Route: 048

REACTIONS (4)
  - MENOPAUSAL SYMPTOMS [None]
  - METRORRHAGIA [None]
  - NIGHT SWEATS [None]
  - SKIN DISORDER [None]
